FAERS Safety Report 19258394 (Version 1)
Quarter: 2021Q2

REPORT INFORMATION
  Report Type: Spontaneous
  Country: FR (occurrence: FR)
  Receive Date: 20210514
  Receipt Date: 20210514
  Transmission Date: 20210717
  Serious: Yes (Hospitalization)
  Sender: FDA-Public Use
  Company Number: FR-ACCORD-225156

PATIENT
  Age: 77 Year
  Sex: Female

DRUGS (2)
  1. CARBOPLATIN ACCORD [Suspect]
     Active Substance: CARBOPLATIN
     Indication: OVARIAN CANCER
     Dosage: 10 MG / ML
     Route: 042
     Dates: start: 20200227, end: 20200227
  2. GEMCITABINE. [Concomitant]
     Active Substance: GEMCITABINE
     Route: 042

REACTIONS (2)
  - Hypotension [Recovered/Resolved]
  - Atrial fibrillation [Recovered/Resolved]

NARRATIVE: CASE EVENT DATE: 20200227
